APPROVED DRUG PRODUCT: NITROGLYCERIN
Active Ingredient: NITROGLYCERIN
Strength: 5MG/ML
Dosage Form/Route: INJECTABLE;INJECTION
Application: A071203 | Product #001
Applicant: ABRAXIS PHARMACEUTICAL PRODUCTS
Approved: May 8, 1987 | RLD: No | RS: No | Type: DISCN